FAERS Safety Report 5463545-1 (Version None)
Quarter: 2007Q3

REPORT INFORMATION
  Report Type: 
  Country: None (occurrence: None)
  Receive Date: 20070920
  Receipt Date: 20070908
  Transmission Date: 20080115
  Serious: Yes (Other)
  Sender: FDA-Public Use
  Company Number: US-PFIZER INC-2007077146

PATIENT
  Sex: Female

DRUGS (1)
  1. LYRICA [Suspect]

REACTIONS (5)
  - ASTHENIA [None]
  - HALLUCINATION [None]
  - SEDATION [None]
  - SOMNOLENCE [None]
  - VISION BLURRED [None]
